FAERS Safety Report 25621937 (Version 2)
Quarter: 2025Q3

REPORT INFORMATION
  Report Type: Spontaneous
  Country: JP (occurrence: JP)
  Receive Date: 20250730
  Receipt Date: 20250805
  Transmission Date: 20251020
  Serious: Yes (Hospitalization)
  Sender: CHEPLAPHARM
  Company Number: JP-CP_KK-2025JP004154

PATIENT
  Age: 92 Year
  Sex: Male

DRUGS (4)
  1. HYDROXYUREA [Suspect]
     Active Substance: HYDROXYUREA
     Indication: Essential thrombocythaemia
     Dosage: DAILY DOSE: 500 MILLIGRAM
     Route: 048
  2. VITAMINS [Concomitant]
     Active Substance: VITAMINS
  3. CAMOSTAT MESYLATE [Concomitant]
     Active Substance: CAMOSTAT MESYLATE
  4. FEBUXOSTAT [Concomitant]
     Active Substance: FEBUXOSTAT

REACTIONS (5)
  - Hyponatraemia [Recovering/Resolving]
  - Physical deconditioning [Unknown]
  - Decreased appetite [Recovering/Resolving]
  - Treatment noncompliance [Unknown]
  - Blood pressure decreased [Recovering/Resolving]

NARRATIVE: CASE EVENT DATE: 20250701
